FAERS Safety Report 6822310-0 (Version None)
Quarter: 2010Q3

REPORT INFORMATION
  Report Type: 
  Country: None (occurrence: None)
  Receive Date: 20100708
  Receipt Date: 20100607
  Transmission Date: 20110219
  Serious: No
  Sender: FDA-Public Use
  Company Number: US-BAYER-201016610BCC

PATIENT
  Age: 83 Year
  Sex: Female
  Weight: 65 kg

DRUGS (7)
  1. ALEVE (CAPLET) [Suspect]
     Indication: MUSCULOSKELETAL PAIN
     Dosage: TOTAL DAILY DOSE: 220 MG  UNIT DOSE: 220 MG
     Route: 048
     Dates: start: 20100101, end: 20100101
  2. LEVOTHYROXINE SODIUM [Concomitant]
     Route: 065
  3. AVAPRO [Concomitant]
     Route: 065
  4. VITAMIN D [Concomitant]
     Dosage: TOTAL DAILY DOSE: 50000 IU  UNIT DOSE: 50000 IU
     Route: 065
  5. NEXIUM [Concomitant]
     Dosage: CONSUMER TOOK 4 TIMES PER WEEK
     Route: 065
  6. CITRACAL [Concomitant]
     Route: 065
  7. VITAMIN C [Concomitant]
     Route: 065

REACTIONS (1)
  - MUSCULOSKELETAL PAIN [None]
